FAERS Safety Report 6628739-8 (Version None)
Quarter: 2010Q1

REPORT INFORMATION
  Report Type: 
  Country: None (occurrence: None)
  Receive Date: 20100311
  Receipt Date: 20100305
  Transmission Date: 20100710
  Serious: Yes (Hospitalization, Disabling)
  Sender: FDA-Public Use
  Company Number: JP-BAYER-200810977BYL

PATIENT
  Age: 73 Year
  Sex: Male
  Weight: 50 kg

DRUGS (24)
  1. NEXAVAR [Suspect]
     Indication: RENAL CELL CARCINOMA
     Dosage: UNIT DOSE: 200 MG
     Route: 048
     Dates: start: 20080306, end: 20080314
  2. NEXAVAR [Suspect]
     Dosage: UNIT DOSE: 200 MG
     Route: 048
     Dates: start: 20080321, end: 20080325
  3. NEXAVAR [Suspect]
     Dosage: UNIT DOSE: 200 MG
     Route: 048
     Dates: start: 20080424, end: 20080529
  4. SOLYUGEN F NOS [Concomitant]
     Indication: THERAPEUTIC EMBOLISATION
     Route: 042
     Dates: start: 20080325, end: 20080325
  5. SOLYUGEN F NOS [Concomitant]
     Route: 042
     Dates: start: 20080326, end: 20080401
  6. VEEN-3G [Concomitant]
     Indication: THERAPEUTIC EMBOLISATION
     Route: 042
     Dates: start: 20080401, end: 20080401
  7. VEEN-3G [Concomitant]
     Route: 042
     Dates: start: 20080325, end: 20080325
  8. FLUMARIN [Concomitant]
     Indication: THERAPEUTIC EMBOLISATION
     Route: 042
     Dates: start: 20080325, end: 20080331
  9. SOSEGON [Concomitant]
     Indication: HIGH FREQUENCY ABLATION
     Route: 042
     Dates: start: 20080325, end: 20080325
  10. SOSEGON [Concomitant]
     Route: 042
     Dates: start: 20080401, end: 20080401
  11. ATARAX [Concomitant]
     Indication: THERAPEUTIC EMBOLISATION
     Route: 042
     Dates: start: 20080325, end: 20080325
  12. ATARAX [Concomitant]
     Route: 042
     Dates: start: 20080401, end: 20080401
  13. SEROTONE [Concomitant]
     Indication: THERAPEUTIC EMBOLISATION
     Route: 042
     Dates: start: 20080325, end: 20080325
  14. ZANTAC [Concomitant]
     Indication: THERAPEUTIC EMBOLISATION
     Route: 042
     Dates: start: 20080325, end: 20080325
  15. CHICHINA [Concomitant]
     Indication: THERAPEUTIC EMBOLISATION
     Route: 042
     Dates: start: 20080401, end: 20080401
  16. CHICHINA [Concomitant]
     Route: 042
     Dates: start: 20080325, end: 20080325
  17. RIKAVARIN [Concomitant]
     Indication: THERAPEUTIC EMBOLISATION
     Route: 042
     Dates: start: 20080401, end: 20080401
  18. RIKAVARIN [Concomitant]
     Route: 042
     Dates: start: 20080325, end: 20080325
  19. DORMICUM [Concomitant]
     Route: 042
     Dates: start: 20080401, end: 20080401
  20. ANEXATE [Concomitant]
     Indication: METASTASES TO LIVER
     Route: 042
     Dates: start: 20080401, end: 20080401
  21. ATROPINE SULFATE [Concomitant]
     Indication: METASTASES TO LIVER
     Route: 042
     Dates: start: 20080401, end: 20080401
  22. MILTAX [Concomitant]
     Indication: PAIN
     Route: 062
     Dates: start: 20080401, end: 20080406
  23. LOXONIN [Concomitant]
     Indication: PAIN
     Route: 048
     Dates: start: 20080327, end: 20080424
  24. COCARL [Concomitant]
     Indication: PAIN
     Route: 048
     Dates: start: 20080405, end: 20080406

REACTIONS (5)
  - CEREBRAL HAEMORRHAGE [None]
  - HEPATIC FUNCTION ABNORMAL [None]
  - MALAISE [None]
  - PAIN [None]
  - PALMAR-PLANTAR ERYTHRODYSAESTHESIA SYNDROME [None]
